FAERS Safety Report 17876947 (Version 3)
Quarter: 2020Q2

REPORT INFORMATION
  Report Type: Spontaneous
  Country: US (occurrence: US)
  Receive Date: 20200609
  Receipt Date: 20200623
  Transmission Date: 20200714
  Serious: No
  Sender: FDA-Public Use
  Company Number: US-VERTEX PHARMACEUTICALS-2020-012332

PATIENT
  Age: 15 Year
  Sex: Female

DRUGS (14)
  1. CREON [Concomitant]
     Active Substance: PANCRELIPASE AMYLASE\PANCRELIPASE LIPASE\PANCRELIPASE PROTEASE
  2. MIRALAX [Concomitant]
     Active Substance: POLYETHYLENE GLYCOL 3350
  3. TRIKAFTA [Suspect]
     Active Substance: ELEXACAFTOR\IVACAFTOR\TEZACAFTOR
     Indication: CYSTIC FIBROSIS
     Dosage: 2 TABS (100 MG ELEXACAFTOR/ 50 MG TEZACAFTOR/ 75 MG IVACAFTOR) AM; 1 TAB (150MG IVACAFTOR) PM
     Route: 048
     Dates: start: 20200518
  4. PULMOZYME [Concomitant]
     Active Substance: DORNASE ALFA
  5. OMEPRAZOLE. [Concomitant]
     Active Substance: OMEPRAZOLE
  6. ALBUTEROL [SALBUTAMOL] [Concomitant]
     Active Substance: ALBUTEROL
  7. KITABIS PAK [Concomitant]
     Active Substance: TOBRAMYCIN
  8. CIPRO [Concomitant]
     Active Substance: CIPROFLOXACIN HYDROCHLORIDE
     Indication: INFECTIVE PULMONARY EXACERBATION OF CYSTIC FIBROSIS
  9. ERGOCALCIFEROL. [Concomitant]
     Active Substance: ERGOCALCIFEROL
  10. CYPROHEPTADINE. [Concomitant]
     Active Substance: CYPROHEPTADINE
  11. NACL [Concomitant]
     Active Substance: SODIUM CHLORIDE
  12. FLOVENT [Concomitant]
     Active Substance: FLUTICASONE PROPIONATE
  13. FLONASE [Concomitant]
     Active Substance: FLUTICASONE PROPIONATE
  14. VITAMIN K [MENADIONE] [Concomitant]
     Active Substance: MENADIONE

REACTIONS (6)
  - Contusion [Not Recovered/Not Resolved]
  - Pulmonary function test decreased [Unknown]
  - Arthralgia [Not Recovered/Not Resolved]
  - Pain in extremity [Recovered/Resolved]
  - Rash [Not Recovered/Not Resolved]
  - Headache [Recovered/Resolved]

NARRATIVE: CASE EVENT DATE: 2020
